FAERS Safety Report 4527537-9 (Version None)
Quarter: 2004Q4

REPORT INFORMATION
  Report Type: 
  Country: None (occurrence: None)
  Receive Date: 20041130
  Receipt Date: 20040924
  Transmission Date: 20050328
  Serious: No
  Sender: FDA-Public Use
  Company Number: WAES 0409USA02154

PATIENT
  Age: 79 Year
  Sex: Female

DRUGS (15)
  1. ZETIA [Suspect]
     Indication: HYPERCHOLESTEROLAEMIA
     Dosage: 10 MG/DAILY/PO
     Route: 048
     Dates: start: 20040922, end: 20040923
  2. ALTACE [Concomitant]
  3. ASTELIN [Concomitant]
  4. COMBIVENT [Concomitant]
  5. FLOVENT [Concomitant]
  6. FOLTX [Concomitant]
  7. HYDRODIURIL [Concomitant]
  8. NASONEX [Concomitant]
  9. NITROSTAT [Concomitant]
  10. PRILOSEC [Concomitant]
  11. TYLENOL (CAPLET) [Concomitant]
  12. VIACTIV SOFT CALCIUM CHEWS [Concomitant]
  13. ZOCOR [Concomitant]
  14. ZYRTEC [Concomitant]
  15. ASPIRIN [Concomitant]

REACTIONS (1)
  - NOCTURIA [None]
